FAERS Safety Report 4989034-6 (Version None)
Quarter: 2006Q1

REPORT INFORMATION
  Report Type: 
  Country: None (occurrence: None)
  Receive Date: 20060314
  Receipt Date: 20051230
  Transmission Date: 20060701
  Serious: Yes (Other)
  Sender: FDA-Public Use
  Company Number: 200514710BCC

PATIENT
  Age: 58 Year
  Sex: Female
  Weight: 89.8122 kg

DRUGS (2)
  1. ALEVE [Suspect]
     Indication: ARTHRALGIA
     Dosage: 220 MG, ONCE, ORAL
     Route: 048
     Dates: start: 20030320
  2. TYLENOL (CAPLET) [Concomitant]

REACTIONS (5)
  - ANAPHYLACTIC REACTION [None]
  - DYSPNOEA [None]
  - ERYTHEMA [None]
  - RASH [None]
  - RASH PRURITIC [None]
